FAERS Safety Report 19824565 (Version 2)
Quarter: 2021Q4

REPORT INFORMATION
  Report Type: Spontaneous
  Country: DE (occurrence: DE)
  Receive Date: 20210913
  Receipt Date: 20211206
  Transmission Date: 20220303
  Serious: Yes (Other)
  Sender: FDA-Public Use
  Company Number: DE-002147023-NVSC2021DE184978

PATIENT
  Age: 18 Year
  Sex: Male
  Weight: 51 kg

DRUGS (3)
  1. RITUXIMAB [Suspect]
     Active Substance: RITUXIMAB
     Indication: Activated PI3 kinase delta syndrome
     Dosage: 375 MG/M2
     Route: 065
     Dates: start: 20210305
  2. RITUXIMAB [Suspect]
     Active Substance: RITUXIMAB
     Dosage: 375 MG/M2
     Route: 065
     Dates: start: 20200124
  3. RITUXIMAB [Suspect]
     Active Substance: RITUXIMAB
     Dosage: 375 MG/M2
     Route: 065
     Dates: start: 20200211

REACTIONS (7)
  - Renal impairment [Unknown]
  - Cytopenia [Unknown]
  - General physical health deterioration [Unknown]
  - Lymphadenopathy [Unknown]
  - Nausea [Unknown]
  - Chills [Unknown]
  - Herpes simplex [Unknown]

NARRATIVE: CASE EVENT DATE: 20200101
